FAERS Safety Report 6607540-5 (Version None)
Quarter: 2010Q1

REPORT INFORMATION
  Report Type: 
  Country: None (occurrence: None)
  Receive Date: 20100301
  Receipt Date: 20100219
  Transmission Date: 20100710
  Serious: Yes (Hospitalization, Other)
  Sender: FDA-Public Use
  Company Number: PHHO2010US02193

PATIENT
  Sex: Female
  Weight: 54.5 kg

DRUGS (18)
  1. AFINITOR [Suspect]
     Indication: SARCOMA
     Dosage: 10MG/DAY
     Route: 048
     Dates: start: 20091229, end: 20100203
  2. DILAUDID [Suspect]
  3. ATIVAN [Concomitant]
  4. VITAMIN B-12 [Concomitant]
  5. CALCIUM [Concomitant]
  6. CLOBETASOL PROPIONATE [Concomitant]
  7. FISH OIL [Concomitant]
  8. NIACIN [Concomitant]
  9. VITAMIN B COMPLEX CAP [Concomitant]
  10. LEXAPRO [Concomitant]
  11. MAGNESIUM [Concomitant]
  12. CALCIUM CARBONATE [Concomitant]
  13. LOVAZA [Concomitant]
  14. ESCITALOPRAM [Concomitant]
  15. MAGNESIUM CHLORIDE [Concomitant]
  16. NICOTINIC ACID [Concomitant]
  17. VALACYCLOVIR HCL [Concomitant]
  18. BENADRYL [Concomitant]

REACTIONS (38)
  - ABDOMINAL DISCOMFORT [None]
  - ABDOMINAL DISTENSION [None]
  - ABDOMINAL PAIN [None]
  - ABDOMINAL PAIN UPPER [None]
  - ALANINE AMINOTRANSFERASE ABNORMAL [None]
  - ASCITES [None]
  - ASPARTATE AMINOTRANSFERASE ABNORMAL [None]
  - BACK PAIN [None]
  - BOWEL MOVEMENT IRREGULARITY [None]
  - CONSTIPATION [None]
  - DIARRHOEA [None]
  - DUODENAL ULCER [None]
  - ENTERITIS [None]
  - FLATULENCE [None]
  - GASTROINTESTINAL DISORDER [None]
  - GASTROINTESTINAL INFLAMMATION [None]
  - GASTROINTESTINAL SOUNDS ABNORMAL [None]
  - HEPATIC LESION [None]
  - HYPOPHAGIA [None]
  - INTESTINAL MASS [None]
  - LOCALISED INTRAABDOMINAL FLUID COLLECTION [None]
  - MALIGNANT NEOPLASM PROGRESSION [None]
  - METASTASES TO ABDOMINAL WALL [None]
  - METASTASES TO BLADDER [None]
  - MUCOSAL INFLAMMATION [None]
  - NAUSEA [None]
  - NODULE [None]
  - OEDEMA [None]
  - OESOPHAGITIS [None]
  - OLIGODIPSIA [None]
  - PYREXIA [None]
  - RENAL FAILURE [None]
  - SMALL INTESTINAL OBSTRUCTION [None]
  - STREPTOCOCCAL INFECTION [None]
  - STRESS [None]
  - THROMBOCYTOPENIA [None]
  - URINARY TRACT INFECTION [None]
  - VOMITING [None]
